FAERS Safety Report 7900921-9 (Version None)
Quarter: 2011Q4

REPORT INFORMATION
  Report Type: 
  Country: None (occurrence: None)
  Receive Date: 20111108
  Receipt Date: 20111024
  Transmission Date: 20120403
  Serious: Yes (Other)
  Sender: FDA-Public Use
  Company Number: CA-ELI_LILLY_AND_COMPANY-CA201110006147

PATIENT
  Age: 44 Year
  Sex: Female

DRUGS (16)
  1. ZYPREXA [Suspect]
     Dosage: 10 MG, UNK
  2. TEGRETOL [Concomitant]
  3. ZOLOFT [Concomitant]
  4. TRILAFON [Concomitant]
  5. PROZAC [Concomitant]
  6. CELEXA [Concomitant]
  7. ZYPREXA [Suspect]
     Dosage: 15 MG, EACH EVENING
  8. SEROQUEL [Concomitant]
  9. AVENTYL HYDROCHLORIDE [Concomitant]
  10. CLONAZEPAM [Concomitant]
  11. REMERON [Concomitant]
  12. ZYPREXA [Suspect]
     Dosage: 5 MG, UNK
  13. MANERIX [Concomitant]
  14. DALMANE [Concomitant]
  15. LAMICTAL [Concomitant]
  16. WELLBUTRIN [Concomitant]

REACTIONS (9)
  - VAGINAL HAEMORRHAGE [None]
  - CHEST PAIN [None]
  - WEIGHT INCREASED [None]
  - MYOCLONUS [None]
  - EPILEPSY [None]
  - HYPERGLYCAEMIA [None]
  - DIABETES MELLITUS [None]
  - EMOTIONAL DISTRESS [None]
  - BLOOD PRESSURE DECREASED [None]
